FAERS Safety Report 9809940 (Version 2)
Quarter: 2015Q4

REPORT INFORMATION
  Report Type: Spontaneous
  Country: US (occurrence: US)
  Receive Date: 20140110
  Receipt Date: 20151228
  Transmission Date: 20160305
  Serious: Yes (Hospitalization)
  Sender: FDA-Public Use
  Company Number: US-SANOFI-AVENTIS-2013SA068249

PATIENT
  Age: 58 Year

DRUGS (2)
  1. PLAVIX [Suspect]
     Active Substance: CLOPIDOGREL BISULFATE
     Indication: VASCULAR GRAFT
     Route: 065
     Dates: start: 20070101, end: 20111020
  2. ASPIRIN. [Concomitant]
     Active Substance: ASPIRIN
     Dates: start: 20110901

REACTIONS (6)
  - Hypoaesthesia [Unknown]
  - Gait disturbance [Unknown]
  - Speech disorder [Unknown]
  - Activities of daily living impaired [Unknown]
  - Cerebral haemorrhage [Unknown]
  - Diplopia [Unknown]

NARRATIVE: CASE EVENT DATE: 20111020
